FAERS Safety Report 23672351 (Version 1)
Quarter: 2024Q1

REPORT INFORMATION
  Report Type: Report from Study
  Country: US (occurrence: US)
  Receive Date: 20240326
  Receipt Date: 20240326
  Transmission Date: 20240409
  Serious: Yes (Hospitalization, Other)
  Sender: FDA-Public Use
  Company Number: US-AstraZeneca-CH-00589443A

PATIENT
  Age: 18 Year
  Sex: Male

DRUGS (1)
  1. ULTOMIRIS [Suspect]
     Active Substance: RAVULIZUMAB-CWVZ
     Indication: Atypical haemolytic uraemic syndrome
     Dosage: UNK
     Route: 042

REACTIONS (4)
  - Meningitis [Recovered/Resolved]
  - Renal failure [Unknown]
  - Chromaturia [Unknown]
  - Contusion [Unknown]

NARRATIVE: CASE EVENT DATE: 20231223
